FAERS Safety Report 5799649-3 (Version None)
Quarter: 2008Q3

REPORT INFORMATION
  Report Type: 
  Country: None (occurrence: None)
  Receive Date: 20080703
  Receipt Date: 20080625
  Transmission Date: 20090109
  Serious: Yes (Other)
  Sender: FDA-Public Use
  Company Number: US-SP-2008-02089

PATIENT
  Sex: Female

DRUGS (2)
  1. IMOVAX RABIES I.D. [Suspect]
     Indication: IMMUNISATION
     Route: 065
  2. IMOGAM RABIES [Suspect]
     Indication: IMMUNISATION
     Route: 065

REACTIONS (6)
  - DYSURIA [None]
  - GENITAL SWELLING [None]
  - LOCAL SWELLING [None]
  - RASH [None]
  - SWELLING FACE [None]
  - SWOLLEN TONGUE [None]
